FAERS Safety Report 8026136-4 (Version None)
Quarter: 2012Q1

REPORT INFORMATION
  Report Type: 
  Country: None (occurrence: None)
  Receive Date: 20120105
  Receipt Date: 20110708
  Transmission Date: 20120608
  Serious: No
  Sender: FDA-Public Use
  Company Number: US-ABBOTT-11P-163-0838524-00

PATIENT
  Sex: Female
  Weight: 47.67 kg

DRUGS (6)
  1. PANTOPRAZOLE [Concomitant]
     Indication: GASTROOESOPHAGEAL REFLUX DISEASE
  2. SYNTHROID [Suspect]
     Dosage: ALTERNATE WITH 50 MCG 4 TIMES WEEKLY
     Dates: start: 20110621
  3. SYNTHROID [Suspect]
     Indication: THYROXINE INCREASED
     Dates: start: 20110510, end: 20110620
  4. SYNTHROID [Suspect]
     Dosage: ALTERNATE WITH 25 MCG THREE DAYS A WEEK
     Dates: start: 20110621
  5. ALPRAZOLAM [Concomitant]
     Indication: PANIC ATTACK
  6. PREMARIN [Concomitant]
     Indication: VULVOVAGINAL DRYNESS

REACTIONS (4)
  - PRURITUS [None]
  - PRURITUS GENERALISED [None]
  - URTICARIA [None]
  - ITCHING SCAR [None]
